FAERS Safety Report 4333598-2 (Version None)
Quarter: 2004Q2

REPORT INFORMATION
  Report Type: 
  Country: None (occurrence: None)
  Receive Date: 20040401
  Receipt Date: 20040322
  Transmission Date: 20050107
  Serious: Yes (Hospitalization, Disabling, Other)
  Sender: FDA-Public Use
  Company Number: 001-0945-M0000697

PATIENT
  Sex: Male

DRUGS (6)
  1. NEURONTIN [Suspect]
     Indication: BACK PAIN
     Dosage: 400 MG (BID), ORAL
     Route: 048
     Dates: start: 19970506, end: 19971101
  2. VALPROATE SODIUM [Suspect]
     Indication: CONVULSION
  3. BUSPIRONE HCL [Concomitant]
  4. FLUOXETINE HCL [Concomitant]
  5. OMEPRAZOLE [Concomitant]
  6. CAPSAICIN (CAPSAICIN) [Concomitant]

REACTIONS (32)
  - ACROCHORDON [None]
  - ANGINA UNSTABLE [None]
  - ARTERIOVENOUS FISTULA, ACQUIRED [None]
  - BLADDER CONSTRICTION [None]
  - BLOOD PRESSURE INCREASED [None]
  - BRAIN NEOPLASM [None]
  - CARDIAC ARREST [None]
  - CONVULSION [None]
  - DERMATITIS CONTACT [None]
  - DERMATOLOGIC EXAMINATION ABNORMAL [None]
  - ELECTROCARDIOGRAM QRS COMPLEX SHORTENED [None]
  - ENCHONDROMATOSIS [None]
  - EXCORIATION [None]
  - GALLBLADDER DISORDER [None]
  - HYPOAESTHESIA [None]
  - IMPAIRED DRIVING ABILITY [None]
  - INTERVERTEBRAL DISC DISORDER [None]
  - INTERVERTEBRAL DISC DISPLACEMENT [None]
  - JOINT INJURY [None]
  - LOWER GASTROINTESTINAL HAEMORRHAGE [None]
  - LUMBAR RADICULOPATHY [None]
  - LYMPHOCYTE PERCENTAGE DECREASED [None]
  - MARITAL PROBLEM [None]
  - NERVOUS SYSTEM DISORDER [None]
  - PAIN [None]
  - PEPTIC ULCER [None]
  - PROTEIN TOTAL DECREASED [None]
  - PRURITUS [None]
  - RED BLOOD CELL SEDIMENTATION RATE INCREASED [None]
  - SKIN IRRITATION [None]
  - STRESS SYMPTOMS [None]
  - SYNCOPE [None]
